FAERS Safety Report 9716784 (Version 1)
Quarter: 2013Q4

REPORT INFORMATION
  Report Type: Spontaneous
  Country: GB (occurrence: GB)
  Receive Date: 20131127
  Receipt Date: 20131127
  Transmission Date: 20140711
  Serious: Yes (Other)
  Sender: FDA-Public Use
  Company Number: GB-PFIZER INC-2013334081

PATIENT
  Age: 41 Year
  Sex: Female

DRUGS (1)
  1. CLINDAMYCIN HCL [Suspect]
     Indication: TOOTH ABSCESS
     Dosage: 300 MG, UNK
     Route: 048
     Dates: start: 20130920, end: 20130926

REACTIONS (6)
  - Stomatitis [Recovered/Resolved]
  - Lip swelling [Recovered/Resolved]
  - Toothache [Recovered/Resolved]
  - Glossodynia [Recovered/Resolved]
  - Oral discomfort [Recovered/Resolved]
  - Oral pain [Recovered/Resolved]
